FAERS Safety Report 9865194 (Version 2)
Quarter: 2014Q1

REPORT INFORMATION
  Report Type: Spontaneous
  Country: US (occurrence: US)
  Receive Date: 20140203
  Receipt Date: 20140203
  Transmission Date: 20141002
  Serious: No
  Sender: FDA-Public Use
  Company Number: US-ALLERGAN-1304321US

PATIENT
  Age: 45 Year
  Sex: Female

DRUGS (2)
  1. RESTASIS [Suspect]
     Indication: PREOPERATIVE CARE
     Dosage: 2 GTT, BID
     Route: 047
     Dates: start: 20130320, end: 20130321
  2. BIRTH CONTROL PILLS [Concomitant]
     Indication: CONTRACEPTION
     Dosage: UNK

REACTIONS (7)
  - Off label use [Unknown]
  - Eyelids pruritus [Recovered/Resolved]
  - Eyelid pain [Recovered/Resolved]
  - Eyelid oedema [Recovered/Resolved]
  - Hypersensitivity [Recovered/Resolved]
  - Foreign body sensation in eyes [Recovered/Resolved]
  - Eyelid oedema [Recovered/Resolved]
